FAERS Safety Report 20297319 (Version 4)
Quarter: 2022Q4

REPORT INFORMATION
  Report Type: Other
  Country: CA (occurrence: None)
  Receive Date: 20220105
  Receipt Date: 20221228
  Transmission Date: 20230112
  Serious: Yes (Other)
  Sender: FDA-Public Use
  Company Number: CA-ROCHE-2989926

PATIENT
  Age: 50 Year
  Sex: Female

DRUGS (4)
  1. OCREVUS [Suspect]
     Active Substance: OCRELIZUMAB
     Indication: Relapsing-remitting multiple sclerosis
     Dosage: MORE DOSAGE INFORMATION IS 300 MG AT DAY 0 AND 14, THEN 600 MG EVERY 6 MONTH
     Route: 042
     Dates: start: 20201105
  2. INDAPAMIDE [Concomitant]
     Active Substance: INDAPAMIDE
  3. PERINDOPRIL ERBUMINE [Concomitant]
     Active Substance: PERINDOPRIL ERBUMINE
  4. AMLODIPINE [Concomitant]
     Active Substance: AMLODIPINE BESYLATE

REACTIONS (6)
  - Blood iron decreased [Not Recovered/Not Resolved]
  - Cholelithiasis [Unknown]
  - Blood pressure increased [Unknown]
  - COVID-19 [Unknown]
  - Anaemia [Unknown]
  - Liver disorder [Unknown]

NARRATIVE: CASE EVENT DATE: 20220414
